FAERS Safety Report 21160360 (Version 2)
Quarter: 2022Q3

REPORT INFORMATION
  Report Type: Spontaneous
  Country: US (occurrence: US)
  Receive Date: 20220802
  Receipt Date: 20220803
  Transmission Date: 20221027
  Serious: No
  Sender: FDA-Public Use
  Company Number: US-ELI_LILLY_AND_COMPANY-US202208000002

PATIENT
  Sex: Female

DRUGS (3)
  1. ZYPREXA RELPREVV [Suspect]
     Active Substance: OLANZAPINE PAMOATE
     Indication: Schizoaffective disorder bipolar type
     Dosage: 300 MG, 2/M
     Route: 030
     Dates: start: 20220714
  2. ZYPREXA RELPREVV [Suspect]
     Active Substance: OLANZAPINE PAMOATE
     Indication: Schizoaffective disorder bipolar type
     Dosage: 300 MG, 2/M
     Route: 030
     Dates: start: 20220714
  3. ZYPREXA RELPREVV [Suspect]
     Active Substance: OLANZAPINE PAMOATE
     Indication: Schizoaffective disorder bipolar type
     Dosage: 300 MG, 2/M
     Route: 030
     Dates: start: 20220714

REACTIONS (2)
  - Injection site fibrosis [Unknown]
  - Injection site cellulitis [Unknown]
